FAERS Safety Report 8249381 (Version 2)
Quarter: 2014Q2

REPORT INFORMATION
  Report Type: Report from Study
  Country: US (occurrence: US)
  Receive Date: 20111117
  Receipt Date: 20140415
  Transmission Date: 20141212
  Serious: Yes (Hospitalization, Other)
  Sender: FDA-Public Use
  Company Number: US-ROCHE-GNE018008

PATIENT
  Age: 14 Year
  Sex: Male
  Weight: 40.54 kg

DRUGS (4)
  1. SOMATREM [Suspect]
     Indication: HYPOPITUITARISM
     Route: 058
     Dates: start: 19870603, end: 19940528
  2. DRISDOL [Concomitant]
     Route: 048
  3. SYNTHROID [Concomitant]
     Route: 048
  4. DILANTIN [Concomitant]
     Route: 048

REACTIONS (1)
  - Osteosarcoma [Recovering/Resolving]
